FAERS Safety Report 15284322 (Version 1)
Quarter: 2018Q3

REPORT INFORMATION
  Report Type: Spontaneous
  Country: US (occurrence: US)
  Receive Date: 20180816
  Receipt Date: 20180816
  Transmission Date: 20181010
  Serious: No
  Sender: FDA-Public Use
  Company Number: US-TEVA-2018-US-941181

PATIENT
  Age: 27 Year
  Sex: Female

DRUGS (2)
  1. QVAR REDIHALER [Suspect]
     Active Substance: BECLOMETHASONE DIPROPIONATE
     Indication: ASTHMA
     Dosage: 2 PUFFS TWICE DAILY
     Route: 065
     Dates: start: 20180716, end: 20180802
  2. GUAFENESIN [Concomitant]
     Active Substance: GUAIFENESIN

REACTIONS (1)
  - Drug ineffective [Unknown]
